FAERS Safety Report 4665027-3 (Version None)
Quarter: 2005Q2

REPORT INFORMATION
  Report Type: 
  Country: None (occurrence: None)
  Receive Date: 20050517
  Receipt Date: 20050428
  Transmission Date: 20051028
  Serious: Yes (Life-Threatening, Hospitalization)
  Sender: FDA-Public Use
  Company Number: EWC050543828

PATIENT
  Age: 77 Year
  Sex: Female
  Weight: 63 kg

DRUGS (3)
  1. PROZAC [Suspect]
     Indication: DEPRESSION
     Dosage: 20 MG DAY
     Dates: start: 20040430, end: 20050319
  2. ALPRAZOLAM [Concomitant]
  3. MOXIFLOXACIN HCL [Concomitant]

REACTIONS (2)
  - PANCYTOPENIA [None]
  - RESPIRATORY TRACT INFECTION [None]
